FAERS Safety Report 14715367 (Version 1)
Quarter: 2018Q2

REPORT INFORMATION
  Report Type: Spontaneous
  Country: GR (occurrence: GR)
  Receive Date: 20180404
  Receipt Date: 20180404
  Transmission Date: 20180711
  Serious: Yes (Death)
  Sender: FDA-Public Use
  Company Number: GR-BAUSCH-BL-2018-008692

PATIENT
  Age: 71 Year
  Sex: Male

DRUGS (5)
  1. FIDAXOMICIN [Suspect]
     Active Substance: FIDAXOMICIN
     Indication: PRODUCT USED FOR UNKNOWN INDICATION
     Route: 048
  2. VANCOMYCIN HYDROCHLORIDE. [Suspect]
     Active Substance: VANCOMYCIN HYDROCHLORIDE
     Indication: BACTERAEMIA
     Route: 048
  3. MEROPENEM. [Suspect]
     Active Substance: MEROPENEM
     Indication: BACTERAEMIA
     Route: 065
  4. VINORELBINE [Concomitant]
     Active Substance: VINORELBINE\VINORELBINE TARTRATE
     Indication: NON-SMALL CELL LUNG CANCER
  5. METRONIDAZOLE. [Suspect]
     Active Substance: METRONIDAZOLE
     Indication: BACTERAEMIA
     Route: 042

REACTIONS (2)
  - Haemodynamic instability [Fatal]
  - Death [Fatal]
